FAERS Safety Report 23848781 (Version 1)
Quarter: 2024Q2

REPORT INFORMATION
  Report Type: Spontaneous
  Country: US (occurrence: None)
  Receive Date: 20240510
  Receipt Date: 20240510
  Transmission Date: 20240716
  Serious: Yes (Hospitalization, Disabling, Other)
  Sender: FDA-Public Use
  Company Number: None

PATIENT
  Age: 61 Year
  Sex: Male
  Weight: 119.25 kg

DRUGS (16)
  1. DUPIXENT [Suspect]
     Active Substance: DUPILUMAB
     Indication: Asthma
     Dates: start: 20240422, end: 20240506
  2. DUPIXENT [Concomitant]
     Active Substance: DUPILUMAB
  3. AMLODIPINE [Concomitant]
     Active Substance: AMLODIPINE BESYLATE
  4. BENAZEPRIL [Concomitant]
     Active Substance: BENAZEPRIL HYDROCHLORIDE
  5. ELIQUIS [Concomitant]
     Active Substance: APIXABAN
  6. MULTAQ [Concomitant]
     Active Substance: DRONEDARONE
  7. XANAX [Concomitant]
     Active Substance: ALPRAZOLAM
  8. PAROXETINE [Concomitant]
     Active Substance: PAROXETINE
  9. YUPELRI [Concomitant]
     Active Substance: REVEFENACIN
  10. soln budesonide [Concomitant]
  11. nebulizer solution [Concomitant]
  12. ARFORMOTEROL [Concomitant]
  13. NEBU nebulizer solution ipratropium albuterol [Concomitant]
  14. Soln inhalation solution [Concomitant]
  15. OMEPRAZOLE [Concomitant]
     Active Substance: DONEPEZIL HYDROCHLORIDE\OMEPRAZOLE\OMEPRAZOLE MAGNESIUM
  16. multiple vitamin [Concomitant]

REACTIONS (1)
  - Anaphylactic reaction [None]

NARRATIVE: CASE EVENT DATE: 20240506
